FAERS Safety Report 10221377 (Version 2)
Quarter: 2014Q2

REPORT INFORMATION
  Report Type: Spontaneous
  Country: TR (occurrence: TR)
  Receive Date: 20140606
  Receipt Date: 20140617
  Transmission Date: 20141212
  Serious: Yes (Hospitalization)
  Sender: FDA-Public Use
  Company Number: TR-PFIZER INC-2014153533

PATIENT
  Age: 64 Year
  Sex: Female
  Weight: 89 kg

DRUGS (4)
  1. DELIX [Suspect]
     Dosage: UNK
     Route: 048
  2. COUMADIN [Suspect]
     Indication: ATRIAL FIBRILLATION
     Dosage: 5 MG X 1.5
     Route: 048
  3. BELOC [Suspect]
     Indication: ATRIAL FIBRILLATION
     Dosage: 1X50 MG
     Route: 065
  4. ASPIRIN [Concomitant]
     Indication: HYPERTENSION
     Dosage: UNK

REACTIONS (3)
  - Arrhythmia [Unknown]
  - Productive cough [Unknown]
  - Epistaxis [Unknown]
